FAERS Safety Report 21974939 (Version 1)
Quarter: 2023Q1

REPORT INFORMATION
  Report Type: Spontaneous
  Country: US (occurrence: US)
  Receive Date: 20230209
  Receipt Date: 20230209
  Transmission Date: 20230418
  Serious: No
  Sender: FDA-Public Use
  Company Number: US-AMGEN-USASP2023019434

PATIENT
  Age: 58 Year
  Sex: Female

DRUGS (2)
  1. PROLIA [Suspect]
     Active Substance: DENOSUMAB
     Indication: Rheumatoid arthritis
     Dosage: UNK UNK, Q6MO
     Route: 058
     Dates: start: 2021
  2. PROLIA [Suspect]
     Active Substance: DENOSUMAB
     Indication: Osteoporosis

REACTIONS (2)
  - Therapy non-responder [Unknown]
  - Spinal pain [Unknown]

NARRATIVE: CASE EVENT DATE: 20230101
